FAERS Safety Report 18591833 (Version 1)
Quarter: 2020Q4

REPORT INFORMATION
  Report Type: Spontaneous
  Country: HU (occurrence: HU)
  Receive Date: 20201208
  Receipt Date: 20201208
  Transmission Date: 20210114
  Serious: Yes (Other)
  Sender: FDA-Public Use
  Company Number: HU-PFIZER INC-2020478382

PATIENT
  Sex: Female

DRUGS (16)
  1. IBANDRONATE SODIUM. [Suspect]
     Active Substance: IBANDRONATE SODIUM
     Indication: BREAST CANCER METASTATIC
  2. EVEROLIMUS. [Suspect]
     Active Substance: EVEROLIMUS
     Indication: PIK3CA-ACTIVATED MUTATION
  3. TAMOXIFEN [Suspect]
     Active Substance: TAMOXIFEN
     Indication: BREAST CANCER METASTATIC
     Dosage: UNK
     Route: 065
  4. TAMOXIFEN [Suspect]
     Active Substance: TAMOXIFEN
     Indication: PIK3CA-ACTIVATED MUTATION
  5. FULVESTRANT. [Suspect]
     Active Substance: FULVESTRANT
     Indication: BREAST CANCER METASTATIC
  6. PACLITAXEL. [Suspect]
     Active Substance: PACLITAXEL
     Indication: BREAST CANCER METASTATIC
  7. CYCLOPHOSPHAMIDE. [Suspect]
     Active Substance: CYCLOPHOSPHAMIDE
     Indication: BREAST CANCER METASTATIC
     Dosage: UNK, CYCLIC (4 CYCLES)
     Route: 065
  8. EVEROLIMUS. [Suspect]
     Active Substance: EVEROLIMUS
     Indication: BREAST CANCER METASTATIC
     Dosage: UNK
     Route: 065
  9. FULVESTRANT. [Suspect]
     Active Substance: FULVESTRANT
     Indication: PIK3CA-ACTIVATED MUTATION
     Dosage: UNK
     Route: 065
  10. EXEMESTANE. [Suspect]
     Active Substance: EXEMESTANE
     Indication: BREAST CANCER METASTATIC
     Dosage: UNK
     Route: 065
  11. EXEMESTANE. [Suspect]
     Active Substance: EXEMESTANE
     Indication: PIK3CA-ACTIVATED MUTATION
  12. PACLITAXEL. [Suspect]
     Active Substance: PACLITAXEL
     Indication: PIK3CA-ACTIVATED MUTATION
     Dosage: UNK, CYCLIC (4 CYCLES)
     Route: 065
  13. EPIRUBICIN HCL [Suspect]
     Active Substance: EPIRUBICIN HYDROCHLORIDE
     Indication: PIK3CA-ACTIVATED MUTATION
     Dosage: UNK UNK, CYCLIC (4 CYCLES)
     Route: 065
  14. EPIRUBICIN HCL [Suspect]
     Active Substance: EPIRUBICIN HYDROCHLORIDE
     Indication: BREAST CANCER METASTATIC
  15. IBANDRONATE SODIUM. [Suspect]
     Active Substance: IBANDRONATE SODIUM
     Indication: PIK3CA-ACTIVATED MUTATION
     Dosage: UNK
     Route: 065
  16. CYCLOPHOSPHAMIDE. [Suspect]
     Active Substance: CYCLOPHOSPHAMIDE
     Indication: PIK3CA-ACTIVATED MUTATION

REACTIONS (2)
  - Neoplasm progression [Unknown]
  - Cardiomyopathy [Unknown]
